FAERS Safety Report 7126679-1 (Version None)
Quarter: 2010Q4

REPORT INFORMATION
  Report Type: 
  Country: None (occurrence: None)
  Receive Date: 20101129
  Receipt Date: 20101124
  Transmission Date: 20110411
  Serious: Yes (Other)
  Sender: FDA-Public Use
  Company Number: JP-ROCHE-744528

PATIENT
  Age: 55 Year
  Sex: Female

DRUGS (4)
  1. AVASTIN [Suspect]
     Indication: LUNG ADENOCARCINOMA
     Dosage: ACTION TAKEN: DISCONTINUED
     Route: 041
     Dates: start: 20100511, end: 20100803
  2. ZOMETA [Suspect]
     Indication: LUNG ADENOCARCINOMA
     Dosage: DOSAGE IS UNCERTAIN.
     Route: 041
  3. CISPLATIN [Concomitant]
     Dosage: DOSAGE IS UNCERTAIN.
     Route: 041
  4. GEMZAR [Concomitant]
     Dosage: DOSAGE IS UNCERTAIN.
     Route: 041

REACTIONS (1)
  - TUBULOINTERSTITIAL NEPHRITIS [None]
